FAERS Safety Report 21893399 (Version 1)
Quarter: 2023Q1

REPORT INFORMATION
  Report Type: Spontaneous
  Country: US (occurrence: US)
  Receive Date: 20230121
  Receipt Date: 20230121
  Transmission Date: 20230417
  Serious: Yes (Other)
  Sender: FDA-Public Use
  Company Number: US-PIRAMAL PHARMA LIMITED-2021-PEL-000916

PATIENT

DRUGS (1)
  1. GABLOFEN [Suspect]
     Active Substance: BACLOFEN
     Indication: Muscle spasticity
     Dosage: 197 MICROGRAM PER DAY
     Route: 037

REACTIONS (2)
  - Device dislocation [Not Recovered/Not Resolved]
  - Muscle spasticity [Not Recovered/Not Resolved]
